FAERS Safety Report 15471113 (Version 2)
Quarter: 2018Q4

REPORT INFORMATION
  Report Type: Spontaneous
  Country: US (occurrence: US)
  Receive Date: 20181006
  Receipt Date: 20181011
  Transmission Date: 20190205
  Serious: No
  Sender: FDA-Public Use
  Company Number: US-JNJFOC-20180925937

PATIENT
  Age: 37 Year
  Sex: Male
  Weight: 83.92 kg

DRUGS (1)
  1. STELARA [Suspect]
     Active Substance: USTEKINUMAB
     Indication: PSORIASIS
     Route: 058

REACTIONS (5)
  - Injection site pain [Unknown]
  - Nasopharyngitis [Recovered/Resolved]
  - Product dose omission [Unknown]
  - Drug effect incomplete [Unknown]
  - Device malfunction [Unknown]

NARRATIVE: CASE EVENT DATE: 201809
